FAERS Safety Report 13351810 (Version 1)
Quarter: 2017Q1

REPORT INFORMATION
  Report Type: Spontaneous
  Country: US (occurrence: US)
  Receive Date: 20170320
  Receipt Date: 20170320
  Transmission Date: 20170429
  Serious: Yes (Life-Threatening, Hospitalization, Disabling)
  Sender: FDA-Public Use
  Company Number: None

PATIENT
  Age: 62 Year
  Sex: Female
  Weight: 55.79 kg

DRUGS (12)
  1. WALKER SEAT [Concomitant]
     Active Substance: DEVICE
  2. DETRO [Concomitant]
  3. TYLENOL WITH CODEINE [Concomitant]
     Active Substance: ACETAMINOPHEN\CODEINE PHOSPHATE
  4. COPAXONE [Concomitant]
     Active Substance: GLATIRAMER ACETATE
  5. WHEELCHAIR [Concomitant]
     Active Substance: DEVICE
  6. TOPROL XL [Concomitant]
     Active Substance: METOPROLOL SUCCINATE
  7. CARAFATE [Concomitant]
     Active Substance: SUCRALFATE
  8. IBANDRONATE [Suspect]
     Active Substance: IBANDRONATE SODIUM
     Indication: OSTEOPOROSIS
     Route: 048
     Dates: start: 20160817, end: 20160817
  9. LOSARTAN. [Concomitant]
     Active Substance: LOSARTAN
  10. BACLOFEN. [Concomitant]
     Active Substance: BACLOFEN
  11. ASA [Concomitant]
     Active Substance: ASPIRIN
  12. VITAMIN D [Concomitant]
     Active Substance: CHOLECALCIFEROL

REACTIONS (7)
  - Abasia [None]
  - Impaired work ability [None]
  - Oesophageal ulcer [None]
  - Dysphagia [None]
  - Pain [None]
  - Femur fracture [None]
  - Impaired quality of life [None]

NARRATIVE: CASE EVENT DATE: 20160822
